FAERS Safety Report 6408886-6 (Version None)
Quarter: 2009Q4

REPORT INFORMATION
  Report Type: 
  Country: None (occurrence: None)
  Receive Date: 20091021
  Receipt Date: 20091016
  Transmission Date: 20100525
  Serious: Yes (Hospitalization)
  Sender: FDA-Public Use
  Company Number: US-MERCK-0910USA02092

PATIENT
  Age: 0 Day
  Sex: Male
  Weight: 2 kg

DRUGS (6)
  1. SINGULAIR [Suspect]
     Indication: ASTHMA
     Route: 064
  2. REBIF [Suspect]
     Indication: MULTIPLE SCLEROSIS
     Route: 064
     Dates: start: 20021113, end: 20090201
  3. COLACE [Suspect]
     Indication: CONSTIPATION
     Route: 064
  4. VENTOLIN [Suspect]
     Indication: ASTHMA
     Route: 064
  5. VITAMINS (UNSPECIFIED) [Concomitant]
     Indication: ANAEMIA
     Route: 064
  6. IRON (UNSPECIFIED) [Concomitant]
     Indication: ANAEMIA
     Route: 064

REACTIONS (6)
  - AMENORRHOEA [None]
  - CEREBRAL HAEMORRHAGE [None]
  - CYANOSIS [None]
  - JAUNDICE [None]
  - PREMATURE BABY [None]
  - SMALL FOR DATES BABY [None]
